FAERS Safety Report 8977029 (Version 1)
Quarter: 2012Q4

REPORT INFORMATION
  Report Type: 
  Country: US (occurrence: US)
  Receive Date: 20121220
  Receipt Date: 20121220
  Transmission Date: 20130627
  Serious: Yes (Other)
  Sender: FDA-Public Use
  Company Number: US-BAYER-2012-131402

PATIENT
  Age: 59 Year
  Sex: Female

DRUGS (2)
  1. REGORAFENIB [Suspect]
     Indication: COLON CANCER
     Dosage: 4 tablets ? 40mg daily
     Route: 048
     Dates: start: 201211
  2. REGORAFENIB [Suspect]
     Indication: COLON CANCER
     Dosage: 2 tablets ? 40mg daily
     Route: 048
     Dates: start: 201212, end: 20121211

REACTIONS (12)
  - Loss of consciousness [Recovered/Resolved]
  - Dyspnoea [Recovered/Resolved]
  - Aphagia [None]
  - Rash [Not Recovered/Not Resolved]
  - Skin burning sensation [Not Recovered/Not Resolved]
  - Pain of skin [Not Recovered/Not Resolved]
  - Constipation [Not Recovered/Not Resolved]
  - Stomatitis [Not Recovered/Not Resolved]
  - Dysphonia [Not Recovered/Not Resolved]
  - Decreased appetite [Not Recovered/Not Resolved]
  - Asthenia [Not Recovered/Not Resolved]
  - Odynophagia [None]
